FAERS Safety Report 5129889-8 (Version None)
Quarter: 2006Q4

REPORT INFORMATION
  Report Type: 
  Country: None (occurrence: None)
  Receive Date: 20061012
  Receipt Date: 20060926
  Transmission Date: 20070319
  Serious: Yes (Hospitalization)
  Sender: FDA-Public Use
  Company Number: 230885

PATIENT
  Age: 54 Year
  Sex: Female
  Weight: 82 kg

DRUGS (8)
  1. HERCEPTIN [Suspect]
     Indication: BREAST CANCER METASTATIC
     Dosage: 4 MG/KG, INTRAVENOUS
     Route: 042
     Dates: start: 20060718, end: 20060926
  2. DOCETAXEL(DOCETAXEL) [Suspect]
     Indication: BREAST CANCER METASTATIC
     Dosage: 100 MG/M2, Q3W, INTRAVENOUS
     Route: 042
     Dates: start: 20060718, end: 20060926
  3. DICLOFENAC SODIUM [Concomitant]
  4. GENERIC COMPONENT (S) (GENERIC COMPONENT (S) [Concomitant]
  5. METOPROLOL TARTRATE [Concomitant]
  6. AMOXICILLIN/CLAVULANIC ACID (AMOXICILLIN, CLAVULANATE POTASSIUM) [Concomitant]
  7. CEFUROXIME [Concomitant]
  8. THIAMAZOLE (METHIMAZOLE) [Concomitant]

REACTIONS (3)
  - PNEUMONIA [None]
  - SEPSIS [None]
  - STAPHYLOCOCCAL INFECTION [None]
